FAERS Safety Report 5469708-3 (Version None)
Quarter: 2007Q3

REPORT INFORMATION
  Report Type: 
  Country: None (occurrence: None)
  Receive Date: 20070926
  Receipt Date: 20070926
  Transmission Date: 20080115
  Serious: No
  Sender: FDA-Public Use
  Company Number: None

PATIENT
  Age: 28 Year
  Sex: Female
  Weight: 90.7194 kg

DRUGS (1)
  1. PENICILLIN [Suspect]
     Dosage: 250 MG Q6H PO
     Route: 048

REACTIONS (2)
  - PRURITUS [None]
  - RASH [None]
